FAERS Safety Report 17428170 (Version 1)
Quarter: 2020Q1

REPORT INFORMATION
  Report Type: Spontaneous
  Country: FR (occurrence: FR)
  Receive Date: 20200217
  Receipt Date: 20200217
  Transmission Date: 20200409
  Serious: Yes (Other)
  Sender: FDA-Public Use
  Company Number: FR-TEVA-2020-FR-1186788

PATIENT
  Age: 61 Year
  Sex: Female
  Weight: 62 kg

DRUGS (10)
  1. TERBUTALINE (SULFATE DE) [Concomitant]
     Active Substance: TERBUTALINE SULFATE
     Route: 055
  2. ESOMEPRAZOLE. [Concomitant]
     Active Substance: ESOMEPRAZOLE MAGNESIUM
     Dosage: 40 MG 1 DAYS
     Route: 048
  3. CIPROFLOXACINE (CHLORHYDRATE DE) [Suspect]
     Active Substance: CIPROFLOXACIN HYDROCHLORIDE
     Indication: ASTHMA
     Dosage: 500 MG 1 DAYS
     Route: 048
     Dates: start: 20190417, end: 20190426
  4. INNOVAIR [Concomitant]
     Active Substance: BECLOMETHASONE DIPROPIONATE\FORMOTEROL
     Dosage: 400 MICROGRAM 1 DAYS
     Route: 055
  5. IPRATROPIUM (BROMURE D^) [Concomitant]
     Active Substance: IPRATROPIUM
     Route: 055
  6. KALEORID [Concomitant]
     Active Substance: POTASSIUM CHLORIDE
     Dosage: 2000 MG 1 DAYS
     Route: 048
  7. PREDNISONE. [Concomitant]
     Active Substance: PREDNISONE
     Dosage: 20 MG 1 DAYS
     Route: 048
  8. BECLOMETASONE BASE [Concomitant]
     Dosage: 200 MICROGRAM 1 DAYS
     Route: 055
  9. MONTELUKAST SODIQUE [Concomitant]
     Active Substance: MONTELUKAST SODIUM
     Dosage: 10 MG 1 DAYS
     Route: 048
  10. LEVOCETIRIZINE (DICHLORHYDRATE DE) [Concomitant]
     Active Substance: LEVOCETIRIZINE
     Dosage: 5 MG 1 DAYS
     Route: 048

REACTIONS (1)
  - Rash maculo-papular [Recovered/Resolved]

NARRATIVE: CASE EVENT DATE: 20190510
